FAERS Safety Report 24261791 (Version 1)
Quarter: 2024Q3

REPORT INFORMATION
  Report Type: Spontaneous
  Country: US (occurrence: US)
  Receive Date: 20240829
  Receipt Date: 20240829
  Transmission Date: 20241017
  Serious: No
  Sender: ENDO
  Company Number: US-ENDO USA, INC.-2024-002272

PATIENT
  Sex: Female

DRUGS (2)
  1. VARENICLINE [Suspect]
     Active Substance: VARENICLINE
     Indication: Smoking cessation therapy
     Dosage: UNK UNKNOWN, UNKNOWN (FIRST 3 DAYS)
     Route: 065
  2. VARENICLINE [Suspect]
     Active Substance: VARENICLINE
     Dosage: UNK UNKNOWN, UNKNOWN, ON DAY 4,  TOOK THE FIRST TABLET AND THEN STOPPED
     Route: 065

REACTIONS (1)
  - COVID-19 [Unknown]
